FAERS Safety Report 5935876-X (Version None)
Quarter: 2008Q4

REPORT INFORMATION
  Report Type: 
  Country: None (occurrence: None)
  Receive Date: 20081029
  Receipt Date: 20081029
  Transmission Date: 20090506
  Serious: Yes (Other)
  Sender: FDA-Public Use
  Company Number: None

PATIENT
  Sex: Female
  Weight: 104.3273 kg

DRUGS (1)
  1. REDUX [Suspect]
     Indication: WEIGHT CONTROL
     Dates: start: 19970601, end: 19970929

REACTIONS (2)
  - RAYNAUD'S PHENOMENON [None]
  - SCLERODERMA [None]
